FAERS Safety Report 4804813-3 (Version None)
Quarter: 2005Q4

REPORT INFORMATION
  Report Type: 
  Country: None (occurrence: None)
  Receive Date: 20051020
  Receipt Date: 20050831
  Transmission Date: 20060501
  Serious: Yes (Hospitalization)
  Sender: FDA-Public Use
  Company Number: PHNU2005DE03028

PATIENT
  Age: 68 Year
  Sex: Female
  Weight: 74 kg

DRUGS (7)
  1. MYFORTIC [Suspect]
     Indication: RENAL TRANSPLANT
     Dosage: 360 MG, QD
     Route: 048
     Dates: start: 20050125
  2. CYNT ^LILLY^ [Concomitant]
     Indication: HYPERTENSION
     Dosage: 0.4 MG, QD
     Route: 048
     Dates: start: 20020101
  3. LASIX [Concomitant]
     Indication: RENAL FAILURE CHRONIC
     Dosage: 160 MG, QD
     Route: 048
     Dates: start: 20020101
  4. PRAVASTATIN [Concomitant]
     Indication: HYPERLIPIDAEMIA
     Dosage: 20 MG, QD
     Route: 048
     Dates: start: 20030101
  5. EZETROL [Concomitant]
     Indication: HYPERLIPIDAEMIA
     Dosage: 10 MG, QD
     Route: 048
     Dates: start: 20030101
  6. URBASON [Concomitant]
     Indication: IMMUNOSUPPRESSION
     Dosage: 8 MG, QD
     Route: 048
     Dates: start: 20030101
  7. EVISTA [Concomitant]
     Indication: OSTEOPOROSIS
     Dosage: 60 MG, QD
     Route: 048

REACTIONS (3)
  - ABDOMINAL PAIN LOWER [None]
  - DIVERTICULITIS [None]
  - GASTROINTESTINAL DISORDER [None]
